FAERS Safety Report 6611030-3 (Version None)
Quarter: 2010Q1

REPORT INFORMATION
  Report Type: 
  Country: None (occurrence: None)
  Receive Date: 20100222
  Receipt Date: 20100209
  Transmission Date: 20100710
  Serious: Yes (Hospitalization)
  Sender: FDA-Public Use
  Company Number: TCI2010A00457

PATIENT
  Age: 82 Year
  Sex: Female

DRUGS (11)
  1. ACTOS [Suspect]
     Indication: DIABETES MELLITUS
     Dosage: 7.5 MG (7.5 MG, 1 D) PER ORAL
     Route: 048
     Dates: start: 20050101, end: 20091218
  2. MERCAZOLE (THIAMAZOLE) [Concomitant]
  3. ASPIRIN [Concomitant]
  4. SIMVASTATIN [Concomitant]
  5. OPALMON (LIMAPROST) [Concomitant]
  6. METHYCOBAL (MECOBALAMIN) [Concomitant]
  7. ALFAROL (ALFACALCIDOL) [Concomitant]
  8. NORVASC [Concomitant]
  9. GLYBURIDE [Concomitant]
  10. TOLTERODINE TARTRATE [Concomitant]
  11. SEIBULE (MIGLITOL) [Concomitant]

REACTIONS (2)
  - FALL [None]
  - FEMORAL NECK FRACTURE [None]
